FAERS Safety Report 4783729-5 (Version None)
Quarter: 2005Q3

REPORT INFORMATION
  Report Type: 
  Country: None (occurrence: None)
  Receive Date: 20050929
  Receipt Date: 20050919
  Transmission Date: 20060218
  Serious: Yes (Hospitalization, Other)
  Sender: FDA-Public Use
  Company Number: US-ABBOTT-05P-163-0311262-00

PATIENT
  Sex: Female

DRUGS (8)
  1. HUMIRA [Suspect]
     Indication: RHEUMATOID ARTHRITIS
     Route: 058
     Dates: start: 20031101
  2. METHOTREXATE SODIUM [Concomitant]
     Indication: RHEUMATOID ARTHRITIS
     Dosage: 8 (2.5 MG) TABLETS WEEKLY
     Route: 048
  3. CELECOXIB [Concomitant]
     Indication: RHEUMATOID ARTHRITIS
     Route: 048
  4. PARACETAMOL [Concomitant]
     Indication: PAIN
     Route: 048
  5. QUETIAPINE FUMARATE [Concomitant]
     Indication: SCHIZOPHRENIA
  6. QUETIAPINE FUMARATE [Concomitant]
     Indication: AGGRESSION
  7. NANADA [Concomitant]
     Indication: DEPRESSION
  8. LEXAPRO [Concomitant]
     Indication: DEPRESSION

REACTIONS (8)
  - AGGRESSION [None]
  - DEMENTIA [None]
  - DEMENTIA ALZHEIMER'S TYPE [None]
  - DEPRESSION [None]
  - FALL [None]
  - HIP FRACTURE [None]
  - SCHIZOPHRENIA [None]
  - SKIN LACERATION [None]
